FAERS Safety Report 4606886-X (Version None)
Quarter: 2005Q1

REPORT INFORMATION
  Report Type: 
  Country: None (occurrence: None)
  Receive Date: 20050310
  Receipt Date: 20050303
  Transmission Date: 20050727
  Serious: Yes (Life-Threatening, Hospitalization)
  Sender: FDA-Public Use
  Company Number: 212845

PATIENT
  Age: 66 Year
  Sex: Male
  Weight: 86.2 kg

DRUGS (7)
  1. AVASTIN [Suspect]
     Indication: PANCREATIC CARCINOMA
     Dosage: 500 MG, Q2W, INTRAVENOUS
     Route: 042
     Dates: start: 20040504, end: 20041206
  2. CISPLATIN [Concomitant]
  3. CPT-11 IIRINOTECAN HYDROCHLORIDE) [Concomitant]
  4. GEMZAR [Concomitant]
  5. LOPRESSOR [Concomitant]
  6. NORVASC [Concomitant]
  7. COUMADIN [Concomitant]

REACTIONS (3)
  - ANASTOMOTIC COMPLICATION [None]
  - METASTATIC NEOPLASM [None]
  - SMALL INTESTINAL PERFORATION [None]
